FAERS Safety Report 9748538 (Version 1)
Quarter: 2013Q4

REPORT INFORMATION
  Report Type: Spontaneous
  Country: US (occurrence: None)
  Receive Date: 20131209
  Receipt Date: 20131209
  Transmission Date: 20140711
  Serious: Yes (Hospitalization)
  Sender: FDA-Public Use
  Company Number: 2013US0455

PATIENT
  Age: 17 Year
  Sex: Female

DRUGS (1)
  1. ORFADIN (NITISINONE) [Suspect]
     Indication: TYROSINAEMIA
     Dates: start: 20030116

REACTIONS (1)
  - General physical health deterioration [None]
